FAERS Safety Report 10051088 (Version 2)
Quarter: 2014Q2

REPORT INFORMATION
  Report Type: Spontaneous
  Country: GB (occurrence: GB)
  Receive Date: 20140401
  Receipt Date: 20140422
  Transmission Date: 20141212
  Serious: Yes (Other)
  Sender: FDA-Public Use
  Company Number: GB-PFIZER INC-2014089361

PATIENT
  Sex: Male

DRUGS (2)
  1. SERTRALINE HCL [Suspect]
     Dosage: 50 MG, UNK
     Dates: start: 201310, end: 201402
  2. WARFARIN [Concomitant]
     Dosage: UNK

REACTIONS (7)
  - Renal impairment [Unknown]
  - Oedema peripheral [Unknown]
  - Cough [Unknown]
  - Ear congestion [Unknown]
  - Proteinuria [Unknown]
  - Decreased appetite [Unknown]
  - Vomiting [Unknown]
